FAERS Safety Report 5684563-4 (Version None)
Quarter: 2008Q1

REPORT INFORMATION
  Report Type: 
  Country: None (occurrence: None)
  Receive Date: 20080328
  Receipt Date: 20070213
  Transmission Date: 20080703
  Serious: No
  Sender: FDA-Public Use
  Company Number: US-BRISTOL-MYERS SQUIBB COMPANY-13678321

PATIENT
  Age: 54 Year
  Sex: Male
  Weight: 93 kg

DRUGS (4)
  1. ERBITUX [Suspect]
     Indication: COLON CANCER
     Route: 042
     Dates: start: 20070103, end: 20070103
  2. ZOFRAN [Concomitant]
  3. HYDROCODONE BITARTRATE [Concomitant]
  4. DOXYCYCLINE [Concomitant]

REACTIONS (2)
  - HYPOMAGNESAEMIA [None]
  - RASH [None]
